FAERS Safety Report 25155641 (Version 2)
Quarter: 2025Q2

REPORT INFORMATION
  Report Type: Spontaneous
  Country: PH (occurrence: PH)
  Receive Date: 20250403
  Receipt Date: 20250512
  Transmission Date: 20250716
  Serious: Yes (Other)
  Sender: NOVARTIS
  Company Number: PH-002147023-NVSC2025PH054784

PATIENT
  Age: 1 Year
  Sex: Male

DRUGS (5)
  1. TOBREX [Suspect]
     Active Substance: TOBRAMYCIN
     Indication: Eye pain
     Dosage: 1 DRP, Q8H (PER EYE EVERY 8 HOURS)
     Route: 047
     Dates: start: 20250326, end: 20250331
  2. TOBREX [Suspect]
     Active Substance: TOBRAMYCIN
     Indication: Eye discharge
  3. TOBREX [Suspect]
     Active Substance: TOBRAMYCIN
     Indication: Swelling
  4. TOBRADEX [Suspect]
     Active Substance: DEXAMETHASONE\TOBRAMYCIN
     Indication: Swelling
     Dosage: 1 DRP, Q8H (PER EYE EVERY 8 HOURS)
     Route: 047
     Dates: start: 20250329, end: 20250331
  5. TOBRADEX [Suspect]
     Active Substance: DEXAMETHASONE\TOBRAMYCIN
     Indication: Eye discharge

REACTIONS (2)
  - Eye swelling [Recovered/Resolved]
  - Pyrexia [Recovered/Resolved]

NARRATIVE: CASE EVENT DATE: 20250329
